FAERS Safety Report 16736556 (Version 2)
Quarter: 2019Q3

REPORT INFORMATION
  Report Type: Spontaneous
  Country: RU (occurrence: RU)
  Receive Date: 20190823
  Receipt Date: 20190904
  Transmission Date: 20191005
  Serious: Yes (Other)
  Sender: FDA-Public Use
  Company Number: RU-BAYER-2019-153153

PATIENT
  Age: 79 Year
  Sex: Female

DRUGS (1)
  1. ULTRAVIST [Suspect]
     Active Substance: IOPROMIDE
     Indication: STENT PLACEMENT
     Dosage: 370 MG, ONCE
     Route: 013
     Dates: start: 20190809, end: 20190809

REACTIONS (4)
  - Suspected product quality issue [None]
  - Acute psychosis [Recovered/Resolved]
  - Delirium [Recovered/Resolved]
  - Psychotic disorder [None]

NARRATIVE: CASE EVENT DATE: 20190810
